FAERS Safety Report 18334898 (Version 1)
Quarter: 2020Q4

REPORT INFORMATION
  Report Type: Spontaneous
  Country: US (occurrence: US)
  Receive Date: 20201001
  Receipt Date: 20201001
  Transmission Date: 20210113
  Serious: No
  Sender: FDA-Public Use
  Company Number: US-ADAREPHARM-2020-US-000024

PATIENT
  Age: 100 Year
  Sex: Male

DRUGS (1)
  1. KCL [Suspect]
     Active Substance: POTASSIUM CHLORIDE

REACTIONS (4)
  - Product size issue [Not Recovered/Not Resolved]
  - Dyspnoea [Unknown]
  - Choking [Recovering/Resolving]
  - Product use complaint [Not Recovered/Not Resolved]

NARRATIVE: CASE EVENT DATE: 20200316
